FAERS Safety Report 9236455 (Version 3)
Quarter: 2014Q3

REPORT INFORMATION
  Report Type: Spontaneous
  Country: US (occurrence: US)
  Receive Date: 20130417
  Receipt Date: 20140728
  Transmission Date: 20150326
  Serious: Yes (Hospitalization, Other)
  Sender: FDA-Public Use
  Company Number: US-009507513-1304USA005250

PATIENT
  Sex: Female
  Weight: 55.42 kg

DRUGS (1)
  1. NUVARING [Suspect]
     Active Substance: ETHINYL ESTRADIOL\ETONOGESTREL
     Indication: CONTRACEPTION
     Dosage: 0.12-0.015 MG/24 HR, 1 RING PER MONTH
     Route: 067
     Dates: start: 20100301, end: 20110321

REACTIONS (8)
  - Treatment noncompliance [Unknown]
  - Pulmonary embolism [Unknown]
  - Headache [Unknown]
  - No therapeutic response [Unknown]
  - Stress [Unknown]
  - Partner stress [Unknown]
  - Anorexia nervosa [Unknown]
  - Anxiety [Unknown]

NARRATIVE: CASE EVENT DATE: 2010
